FAERS Safety Report 12642460 (Version 4)
Quarter: 2016Q4

REPORT INFORMATION
  Report Type: Spontaneous
  Country: JP (occurrence: JP)
  Receive Date: 20160810
  Receipt Date: 20161005
  Transmission Date: 20170207
  Serious: Yes (Other)
  Sender: FDA-Public Use
  Company Number: JP-009507513-1608JPN004548

PATIENT
  Age: 59 Year
  Sex: Male
  Weight: 62 kg

DRUGS (7)
  1. CANCIDAS [Suspect]
     Active Substance: CASPOFUNGIN ACETATE
     Indication: FEBRILE NEUTROPENIA
     Dosage: 70 MG, QD
     Route: 041
     Dates: start: 20160614, end: 20160614
  2. VANCOMYCIN HYDROCHLORIDE. [Interacting]
     Active Substance: VANCOMYCIN HYDROCHLORIDE
     Indication: FEBRILE NEUTROPENIA
     Dosage: 1 G, TID
     Route: 051
     Dates: start: 20160607, end: 20160619
  3. ZOSYN [Interacting]
     Active Substance: PIPERACILLIN SODIUM\TAZOBACTAM SODIUM
     Indication: FEBRILE NEUTROPENIA
     Dosage: 4.5 G, QID
     Route: 051
     Dates: start: 20160616, end: 20160619
  4. NEXIUM [Concomitant]
     Active Substance: ESOMEPRAZOLE MAGNESIUM
     Indication: PROPHYLAXIS
     Dosage: 10 MG, QD
     Route: 048
     Dates: start: 20160603
  5. ITRACONAZOLE. [Concomitant]
     Active Substance: ITRACONAZOLE
     Indication: FEBRILE NEUTROPENIA
     Dosage: 20 ML, DIVIDED DOSE FREQUENCY UNKNONW
     Route: 048
     Dates: start: 20160604, end: 20160614
  6. CANCIDAS [Suspect]
     Active Substance: CASPOFUNGIN ACETATE
     Indication: FEBRILE NEUTROPENIA
     Dosage: 50 MG, QD
     Route: 041
     Dates: start: 20160615, end: 20160718
  7. FINIBAX [Concomitant]
     Active Substance: DORIPENEM MONOHYDRATE
     Indication: FEBRILE NEUTROPENIA
     Dosage: 1 G, TID
     Route: 051
     Dates: start: 20160612, end: 20160616

REACTIONS (5)
  - Pruritus [Recovered/Resolved]
  - Hypokalaemia [Recovered/Resolved]
  - Renal disorder [Recovering/Resolving]
  - Blood lactate dehydrogenase increased [Recovered/Resolved]
  - Blood alkaline phosphatase increased [Recovered/Resolved]

NARRATIVE: CASE EVENT DATE: 20160619
